FAERS Safety Report 25215761 (Version 3)
Quarter: 2025Q2

REPORT INFORMATION
  Report Type: Spontaneous
  Country: US (occurrence: US)
  Receive Date: 20250418
  Receipt Date: 20250620
  Transmission Date: 20250717
  Serious: Yes (Life-Threatening, Hospitalization, Other)
  Sender: ORGANON
  Company Number: US-ORGANON-O2504USA001879

PATIENT
  Sex: Female

DRUGS (3)
  1. FOSAMAX [Interacting]
     Active Substance: ALENDRONATE SODIUM
     Indication: Osteopenia
     Dosage: UNK, QW (ONCE A WEEK) (TAKEN FIVE TIMES)
     Route: 048
     Dates: start: 20250312, end: 20250413
  2. ASPIRIN [Interacting]
     Active Substance: ASPIRIN
  3. PLAVIX [Concomitant]
     Active Substance: CLOPIDOGREL BISULFATE

REACTIONS (10)
  - Mouth haemorrhage [Not Recovered/Not Resolved]
  - Chest pain [Not Recovered/Not Resolved]
  - Fatigue [Not Recovered/Not Resolved]
  - Anaemia [Not Recovered/Not Resolved]
  - Internal haemorrhage [Not Recovered/Not Resolved]
  - Faeces discoloured [Not Recovered/Not Resolved]
  - Dyspnoea [Unknown]
  - Gait disturbance [Unknown]
  - Haematochezia [Unknown]
  - Drug interaction [Unknown]

NARRATIVE: CASE EVENT DATE: 20250101
